FAERS Safety Report 9016009 (Version 1)
Quarter: 2013Q1

REPORT INFORMATION
  Report Type: Spontaneous
  Country: BR (occurrence: BR)
  Receive Date: 20130116
  Receipt Date: 20130116
  Transmission Date: 20140127
  Serious: Yes (Other)
  Sender: FDA-Public Use
  Company Number: BR-009507513-1210BRA012201

PATIENT
  Age: 37 None
  Sex: Male
  Weight: 80 kg

DRUGS (5)
  1. VICTRELIS [Suspect]
     Indication: HEPATITIS C
     Dosage: UNK, TID
     Route: 048
     Dates: start: 20121022
  2. RIBAVIRIN [Concomitant]
     Indication: HEPATITIS C
     Dosage: UNK, BID
     Route: 048
     Dates: start: 201103
  3. RIBAVIRIN [Concomitant]
     Dosage: 500 MG, BID
     Route: 048
     Dates: start: 20121015
  4. PEGINTERFERON ALFA-2A [Concomitant]
     Indication: HEPATITIS C
     Dosage: 180 MICROGRAM, QW
     Dates: start: 201103
  5. PEGINTERFERON ALFA-2A [Concomitant]
     Dosage: 180 MICROGRAM, QW
     Route: 058
     Dates: start: 20121015

REACTIONS (9)
  - Hypertensive crisis [Recovered/Resolved]
  - Mood altered [Not Recovered/Not Resolved]
  - Diarrhoea [Not Recovered/Not Resolved]
  - Irritability [Not Recovered/Not Resolved]
  - Pruritus [Not Recovered/Not Resolved]
  - Drug administration error [Unknown]
  - Pyrexia [Recovered/Resolved]
  - Dry skin [Recovering/Resolving]
  - Hypersensitivity [Recovering/Resolving]
